FAERS Safety Report 8506151-4 (Version None)
Quarter: 2012Q3

REPORT INFORMATION
  Report Type: 
  Country: None (occurrence: None)
  Receive Date: 20120712
  Receipt Date: 20120711
  Transmission Date: 20120928
  Serious: No
  Sender: FDA-Public Use
  Company Number: US-B.I. PHARMACEUTICALS,INC./RIDGEFIELD-2012-BP-15464BP

PATIENT
  Sex: Male

DRUGS (3)
  1. COREG [Concomitant]
     Indication: BLOOD PRESSURE
  2. TARKA [Concomitant]
     Indication: BLOOD PRESSURE
  3. PRADAXA [Suspect]
     Indication: ATRIAL FIBRILLATION
     Dosage: 300 MG
     Route: 048
     Dates: start: 20110101

REACTIONS (1)
  - RENAL IMPAIRMENT [None]
